FAERS Safety Report 15468975 (Version 1)
Quarter: 2018Q4

REPORT INFORMATION
  Report Type: Report from Study
  Country: ES (occurrence: ES)
  Receive Date: 20181005
  Receipt Date: 20181005
  Transmission Date: 20190205
  Serious: Yes (Hospitalization)
  Sender: FDA-Public Use
  Company Number: ES-TEVA-2018-ES-961535

PATIENT
  Age: 35 Year
  Sex: Male

DRUGS (3)
  1. BISOPROLOL (2328A) [Concomitant]
     Active Substance: BISOPROLOL
     Dosage: 2.5 MG FOOD
     Route: 048
     Dates: start: 20171031
  2. ATORVASTATINA (7400A) [Suspect]
     Active Substance: ATORVASTATIN
     Dosage: 0-0-1
     Route: 048
     Dates: start: 20171031, end: 20171210
  3. LORAZEPAM (1864A) [Concomitant]
     Active Substance: LORAZEPAM
     Dosage: 1 MG AT 23 HOURS
     Route: 048
     Dates: start: 20171031

REACTIONS (1)
  - Hepatitis acute [Recovered/Resolved]

NARRATIVE: CASE EVENT DATE: 20171110
